FAERS Safety Report 25859058 (Version 1)
Quarter: 2025Q3

REPORT INFORMATION
  Report Type: Spontaneous
  Country: CN (occurrence: CN)
  Receive Date: 20250929
  Receipt Date: 20250929
  Transmission Date: 20251020
  Serious: Yes (Hospitalization)
  Sender: ALEXION PHARMACEUTICALS
  Company Number: CN-ASTRAZENECA-202509CHN021350CN

PATIENT
  Age: 78 Year
  Sex: Female
  Weight: 55 kg

DRUGS (2)
  1. DAPAGLIFLOZIN [Suspect]
     Active Substance: DAPAGLIFLOZIN
     Indication: Diabetes mellitus
     Dosage: 10 MILLIGRAM, QD
     Dates: start: 20250525, end: 20250810
  2. GLIQUIDONE [Suspect]
     Active Substance: GLIQUIDONE
     Indication: Diabetes mellitus
     Dosage: 30 MILLIGRAM, TID
     Dates: start: 20250525, end: 20250810

REACTIONS (5)
  - Altered state of consciousness [Recovered/Resolved]
  - Hypoglycaemic coma [Recovered/Resolved]
  - Diabetes mellitus inadequate control [Recovered/Resolved]
  - Diabetic complication [Recovered/Resolved]
  - Diabetic complication neurological [Recovered/Resolved]

NARRATIVE: CASE EVENT DATE: 20250810
